FAERS Safety Report 25712623 (Version 1)
Quarter: 2025Q3

REPORT INFORMATION
  Report Type: Spontaneous
  Country: US (occurrence: US)
  Receive Date: 20250821
  Receipt Date: 20250821
  Transmission Date: 20251021
  Serious: Yes (Life-Threatening, Hospitalization, Other)
  Sender: B. BRAUN MEDICAL INC.
  Company Number: None

PATIENT
  Age: 17 Year
  Sex: Male
  Weight: 70 kg

DRUGS (1)
  1. MANNITOL [Suspect]
     Active Substance: MANNITOL
     Indication: Intracranial pressure increased

REACTIONS (3)
  - Diabetes insipidus [Recovered/Resolved]
  - Unmasking of previously unidentified disease [Recovered/Resolved]
  - Hypernatraemia [Recovered/Resolved]
